FAERS Safety Report 8762178 (Version 1)
Quarter: 2012Q4

REPORT INFORMATION
  Report Type: 
  Country: BR (occurrence: BR)
  Receive Date: 20120829
  Receipt Date: 20120829
  Transmission Date: 20130627
  Serious: Yes (Other)
  Sender: FDA-Public Use
  Company Number: BR-PFIZER INC-2012207477

PATIENT
  Age: 51 Year
  Sex: Female

DRUGS (8)
  1. LYRICA [Suspect]
     Indication: FIBROMYALGIA
     Dosage: 1 capsule of 75 mg, 1x/day
     Route: 048
     Dates: start: 2010, end: 201208
  2. CYMBALTA [Concomitant]
     Indication: FIBROMYALGIA
     Dosage: 1 DF, 1x/day
     Dates: start: 201203
  3. CYMBALTA [Concomitant]
     Indication: DEPRESSION
  4. DIOVAN HCT [Concomitant]
     Indication: HYPERTENSION
     Dosage: 1 tablet of 80 mg, daily
     Dates: start: 201008
  5. EQUILID [Concomitant]
     Indication: ANXIETY
     Dosage: 1 tablet of 50 mg, daily
     Dates: start: 201204
  6. LIVIAL [Concomitant]
     Indication: HORMONE REPLACEMENT THERAPY
     Dosage: 1 tablet of 2.5 mg, daily
     Dates: start: 201207
  7. PANTOPRAZOL [Concomitant]
     Indication: GASTRIC DISORDER
     Dosage: 1 tablet of 40 mg, daily
     Dates: start: 200908
  8. RUSOVAS [Concomitant]
     Indication: BLOOD CHOLESTEROL ABNORMAL
     Dosage: 1 tablet of 10 mg, daily
     Dates: start: 201201

REACTIONS (2)
  - Hypothyroidism [Not Recovered/Not Resolved]
  - Dizziness [Not Recovered/Not Resolved]
